FAERS Safety Report 4500594-1 (Version None)
Quarter: 2004Q4

REPORT INFORMATION
  Report Type: 
  Country: None (occurrence: None)
  Receive Date: 20041115
  Receipt Date: 20041103
  Transmission Date: 20050328
  Serious: Yes (Hospitalization)
  Sender: FDA-Public Use
  Company Number: FR-ABBOTT-04P-056-0279781-00

PATIENT
  Age: 76 Year
  Sex: Male
  Weight: 81 kg

DRUGS (8)
  1. TARKA [Suspect]
     Indication: DRUG USE FOR UNKNOWN INDICATION
     Route: 048
     Dates: end: 20041005
  2. FEROGRAD TABLETS [Suspect]
     Indication: DRUG USE FOR UNKNOWN INDICATION
     Route: 048
     Dates: end: 20041005
  3. DIANTALVIC [Suspect]
     Indication: DRUG USE FOR UNKNOWN INDICATION
     Route: 048
     Dates: end: 20041005
  4. TRANEXAMIC ACID [Suspect]
     Indication: DRUG USE FOR UNKNOWN INDICATION
     Route: 048
     Dates: end: 20041005
  5. ZOLPIDEM [Suspect]
     Indication: DRUG USE FOR UNKNOWN INDICATION
     Route: 048
     Dates: end: 20041005
  6. OXAZEPAM [Suspect]
     Indication: DRUG USE FOR UNKNOWN INDICATION
     Route: 048
     Dates: start: 20040723, end: 20041005
  7. INSULIN [Concomitant]
     Indication: DIABETES MELLITUS
     Route: 058
  8. ASPARTE INSULIN [Concomitant]
     Indication: DIABETES MELLITUS
     Route: 058

REACTIONS (3)
  - EOSINOPHILIA [None]
  - INJECTION SITE HAEMORRHAGE [None]
  - THROMBOCYTOPENIA [None]
